FAERS Safety Report 6908449-X (Version None)
Quarter: 2010Q3

REPORT INFORMATION
  Report Type: 
  Country: None (occurrence: None)
  Receive Date: 20100805
  Receipt Date: 20100802
  Transmission Date: 20110219
  Serious: Yes (Death)
  Sender: FDA-Public Use
  Company Number: US-SANOFI-AVENTIS-2010SA045903

PATIENT
  Age: 82 Year
  Sex: Female

DRUGS (7)
  1. PLAVIX [Suspect]
     Route: 065
  2. LASIX [Concomitant]
  3. LIPITOR [Concomitant]
  4. PAXIL [Concomitant]
  5. ATIVAN [Concomitant]
  6. CARDIAC THERAPY [Concomitant]
  7. INSULIN [Concomitant]

REACTIONS (1)
  - CARDIAC FAILURE CONGESTIVE [None]
